FAERS Safety Report 15398548 (Version 1)
Quarter: 2018Q3

REPORT INFORMATION
  Report Type: Report from Study
  Country: AR (occurrence: AR)
  Receive Date: 20180918
  Receipt Date: 20180918
  Transmission Date: 20181010
  Serious: Yes (Death, Hospitalization)
  Sender: FDA-Public Use
  Company Number: PHHY2017AR144108

PATIENT
  Age: 75 Year
  Sex: Male

DRUGS (1)
  1. ENTRESTO [Suspect]
     Active Substance: SACUBITRIL\VALSARTAN
     Indication: CARDIAC FAILURE CHRONIC
     Dosage: 0.5 DF, Q12H (50 MG IN THE MORNING AND 50 MG AT NIGHT)
     Route: 065

REACTIONS (9)
  - Pulmonary oedema [Fatal]
  - Pneumonia [Unknown]
  - Drug prescribing error [Not Recovered/Not Resolved]
  - Pulmonary mass [Fatal]
  - Weight decreased [Fatal]
  - Chronic obstructive pulmonary disease [Fatal]
  - Cardiac arrest [Fatal]
  - Hernia [Unknown]
  - Wrong technique in product usage process [Not Recovered/Not Resolved]

NARRATIVE: CASE EVENT DATE: 201712
